FAERS Safety Report 24329182 (Version 2)
Quarter: 2024Q4

REPORT INFORMATION
  Report Type: Spontaneous
  Country: JP (occurrence: JP)
  Receive Date: 20240917
  Receipt Date: 20241107
  Transmission Date: 20250114
  Serious: Yes (Other)
  Sender: FERRING
  Company Number: JP-ferring-EVA202401360FERRINGPH

PATIENT

DRUGS (1)
  1. DEGARELIX [Suspect]
     Active Substance: DEGARELIX
     Indication: Prostate cancer
     Dosage: UNK
     Route: 058

REACTIONS (3)
  - Prostate cancer recurrent [Unknown]
  - Prostatic specific antigen increased [Unknown]
  - Inappropriate schedule of product administration [Unknown]
